FAERS Safety Report 15668244 (Version 2)
Quarter: 2019Q1

REPORT INFORMATION
  Report Type: Spontaneous
  Country: FR (occurrence: FR)
  Receive Date: 20181129
  Receipt Date: 20190202
  Transmission Date: 20190417
  Serious: Yes (Hospitalization)
  Sender: FDA-Public Use
  Company Number: FR-ACCORD-094184

PATIENT
  Age: 56 Year
  Sex: Male
  Weight: 82 kg

DRUGS (17)
  1. BISOPROLOL [Concomitant]
     Active Substance: BISOPROLOL
  2. STILNOX [Concomitant]
     Active Substance: ZOLPIDEM TARTRATE
  3. VALIUM [Concomitant]
     Active Substance: DIAZEPAM
  4. KARDEGIC [Concomitant]
     Active Substance: ASPIRIN DL-LYSINE
  5. RAMIPRIL. [Suspect]
     Active Substance: RAMIPRIL
     Indication: HYPERTENSION
     Route: 048
     Dates: start: 201606, end: 20171209
  6. DIFICLIR [Suspect]
     Active Substance: FIDAXOMICIN
     Indication: CLOSTRIDIUM DIFFICILE COLITIS
     Route: 048
     Dates: start: 20171102, end: 20171104
  7. LYRICA [Concomitant]
     Active Substance: PREGABALIN
  8. LANTUS [Concomitant]
     Active Substance: INSULIN GLARGINE
  9. CEFTRIAXONE PANPHARMA [Suspect]
     Active Substance: CEFTRIAXONE
     Indication: BACTERIAL INFECTION
     Route: 042
     Dates: start: 20171031, end: 20171103
  10. APROVEL [Suspect]
     Active Substance: IRBESARTAN
     Indication: HYPERTENSION
     Route: 048
     Dates: start: 20171209
  11. INEXIUM [Concomitant]
     Active Substance: ESOMEPRAZOLE
  12. FLAGYL [Suspect]
     Active Substance: METRONIDAZOLE\METRONIDAZOLE HYDROCHLORIDE
     Indication: CLOSTRIDIUM DIFFICILE COLITIS
     Route: 048
     Dates: start: 20171104, end: 20171110
  13. NOVORAPID [Concomitant]
     Active Substance: INSULIN ASPART
  14. DULOXETINE. [Concomitant]
     Active Substance: DULOXETINE
  15. PREVISCAN [Concomitant]
  16. FUROSEMIDE. [Concomitant]
     Active Substance: FUROSEMIDE
  17. TERCIAN [Concomitant]
     Active Substance: CYAMEMAZINE

REACTIONS (1)
  - Drug reaction with eosinophilia and systemic symptoms [Recovering/Resolving]

NARRATIVE: CASE EVENT DATE: 20171211
